FAERS Safety Report 4876387-2 (Version None)
Quarter: 2006Q1

REPORT INFORMATION
  Report Type: 
  Country: None (occurrence: None)
  Receive Date: 20060110
  Receipt Date: 20051110
  Transmission Date: 20060701
  Serious: Yes (Hospitalization)
  Sender: FDA-Public Use
  Company Number: HQWYE514511NOV05

PATIENT
  Age: 49 Year
  Sex: Female
  Weight: 54.5 kg

DRUGS (12)
  1. ENBREL [Suspect]
     Indication: RHEUMATOID ARTHRITIS
     Route: 058
     Dates: start: 20050510
  2. PREDNISOLONE [Concomitant]
     Dosage: 20 MG/DAY, TAB
     Route: 048
     Dates: start: 19910101, end: 20050518
  3. PREDNISOLONE [Concomitant]
  4. PREDNISOLONE [Concomitant]
     Dates: start: 20050915
  5. METHOTREXATE [Concomitant]
     Route: 048
     Dates: start: 20031001
  6. LANSOPRAZOLE [Concomitant]
     Dates: start: 20050106, end: 20050707
  7. ASPIRIN [Concomitant]
     Dates: start: 20050121
  8. FERROUS SULFATE TAB [Concomitant]
     Dates: start: 20050310, end: 20050703
  9. RISEDRONIC  ACID [Concomitant]
     Dates: end: 20050709
  10. OLOPATADINE [Concomitant]
  11. MAGNESIUM OXIDE [Concomitant]
     Dates: start: 20050224
  12. WARFARIN [Concomitant]
     Dates: start: 20050121

REACTIONS (3)
  - ANTIPHOSPHOLIPID SYNDROME [None]
  - DYSPHONIA [None]
  - URTICARIA [None]
